APPROVED DRUG PRODUCT: TEVETEN
Active Ingredient: EPROSARTAN MESYLATE
Strength: EQ 400MG BASE **Federal Register determination that product was not discontinued or withdrawn for safety or effectiveness reasons**
Dosage Form/Route: TABLET;ORAL
Application: N020738 | Product #005
Applicant: ABBVIE INC
Approved: Dec 22, 1997 | RLD: Yes | RS: No | Type: DISCN